FAERS Safety Report 19706385 (Version 1)
Quarter: 2021Q3

REPORT INFORMATION
  Report Type: Spontaneous
  Country: DE (occurrence: DE)
  Receive Date: 20210817
  Receipt Date: 20210817
  Transmission Date: 20211014
  Serious: Yes (Hospitalization, Other)
  Sender: FDA-Public Use
  Company Number: DE-TEVA-2021-DE-1941776

PATIENT
  Age: 41 Year
  Sex: Male
  Weight: 75 kg

DRUGS (7)
  1. ESCITALOPRAM [Concomitant]
     Active Substance: ESCITALOPRAM OXALATE
     Dosage: 10 MILLIGRAM DAILY; 1?0?0?0
  2. CARBOPLATIN. [Suspect]
     Active Substance: CARBOPLATIN
     Dosage: SCHEME
  3. PARACETAMOL [Concomitant]
     Active Substance: ACETAMINOPHEN
     Dosage: 2000 MILLIGRAM DAILY; 1?1?1?1
  4. PANTOPRAZOL [Concomitant]
     Active Substance: PANTOPRAZOLE SODIUM
     Dosage: 40 MILLIGRAM DAILY; 1?0?0?0
  5. PREGABALIN. [Concomitant]
     Active Substance: PREGABALIN
     Dosage: 4 DOSAGE FORMS DAILY; 100MG, 2?0?2?0
  6. PACLITAXEL. [Suspect]
     Active Substance: PACLITAXEL
     Dosage: SCHEME
  7. METOCLOPRAMID [Concomitant]
     Active Substance: METOCLOPRAMIDE
     Dosage: 30 MILLIGRAM DAILY; 1?1?1?0

REACTIONS (6)
  - Systemic infection [Unknown]
  - Condition aggravated [Unknown]
  - General physical health deterioration [Unknown]
  - Anaemia [Unknown]
  - Abdominal distension [Unknown]
  - Pain [Unknown]
